FAERS Safety Report 7484022-2 (Version None)
Quarter: 2011Q2

REPORT INFORMATION
  Report Type: 
  Country: None (occurrence: None)
  Receive Date: 20110517
  Receipt Date: 20110418
  Transmission Date: 20111010
  Serious: Yes (Hospitalization, Other)
  Sender: FDA-Public Use
  Company Number: US-BAYER-201041845NA

PATIENT
  Age: 32 Year
  Sex: Female
  Weight: 79 kg

DRUGS (7)
  1. CLONAZEPAM [Concomitant]
     Dosage: UNK UNK, QD
     Dates: start: 20080101, end: 20100101
  2. VERAMYST [Concomitant]
  3. YAZ [Suspect]
     Indication: CONTRACEPTION
     Dosage: 1 DF, QD
     Dates: start: 20080514, end: 20100426
  4. PREDNISONE [Concomitant]
     Dosage: 20 MG, UNK
     Dates: start: 20040101, end: 20090101
  5. IMITREX [Concomitant]
     Dosage: UNK
     Dates: start: 20030101, end: 20090101
  6. TOPAMAX [Concomitant]
  7. ZYRTEC [Concomitant]

REACTIONS (2)
  - GALLBLADDER INJURY [None]
  - CHOLECYSTITIS CHRONIC [None]
